FAERS Safety Report 17855059 (Version 2)
Quarter: 2020Q2

REPORT INFORMATION
  Report Type: Spontaneous
  Country: GB (occurrence: GB)
  Receive Date: 20200603
  Receipt Date: 20200604
  Transmission Date: 20200714
  Serious: Yes (Life-Threatening, Other)
  Sender: FDA-Public Use
  Company Number: GB-TEVA-2020-GB-1243234

PATIENT
  Age: 89 Year
  Sex: Female
  Weight: 61 kg

DRUGS (6)
  1. WARFARIN [Suspect]
     Active Substance: WARFARIN
     Indication: ATRIAL FIBRILLATION
     Dosage: WARFARIN 4MG SUNDAY, 3MG EVERY OTHER DAY
     Route: 048
     Dates: start: 20120307
  2. SPIRONOLACTONE. [Concomitant]
     Active Substance: SPIRONOLACTONE
  3. BUMETANIDE. [Concomitant]
     Active Substance: BUMETANIDE
  4. PARACETAMOL [Concomitant]
     Active Substance: ACETAMINOPHEN
  5. COLECALCIFEROL [Concomitant]
     Active Substance: CHOLECALCIFEROL
  6. MEROPENEM. [Concomitant]
     Active Substance: MEROPENEM

REACTIONS (1)
  - International normalised ratio increased [Recovered/Resolved]

NARRATIVE: CASE EVENT DATE: 20200313
